FAERS Safety Report 6616537-0 (Version None)
Quarter: 2010Q1

REPORT INFORMATION
  Report Type: 
  Country: None (occurrence: None)
  Receive Date: 20100305
  Receipt Date: 20100223
  Transmission Date: 20100710
  Serious: Yes (Other)
  Sender: FDA-Public Use
  Company Number: DK-PFIZER INC-2010023656

PATIENT
  Age: 38 Year
  Sex: Female

DRUGS (3)
  1. NEURONTIN [Suspect]
     Indication: MULTIPLE SCLEROSIS
     Dosage: 3600 MG, 1X/DAY
     Route: 048
     Dates: start: 20050101
  2. LANSOPRAZOLE [Concomitant]
     Indication: HYPERCHLORHYDRIA
     Dosage: 15 MG, 1X/DAY
     Route: 048
  3. DETRUSITOL [Concomitant]
     Indication: HYPERTONIC BLADDER
     Dosage: 1.4 MG, 1X/DAY
     Route: 048

REACTIONS (3)
  - DENTAL CARIES [None]
  - GINGIVAL PAIN [None]
  - TOOTHACHE [None]
